FAERS Safety Report 13079526 (Version 2)
Quarter: 2017Q2

REPORT INFORMATION
  Report Type: Spontaneous
  Country: US (occurrence: US)
  Receive Date: 20170103
  Receipt Date: 20170411
  Transmission Date: 20170830
  Serious: Yes (Hospitalization)
  Sender: FDA-Public Use
  Company Number: PHEH2016US033937

PATIENT
  Sex: Female

DRUGS (15)
  1. LETROZOLE. [Suspect]
     Active Substance: LETROZOLE
     Indication: PRODUCT USED FOR UNKNOWN INDICATION
     Dosage: 2.5 MG, UNK
     Route: 065
  2. AROMASIN [Suspect]
     Active Substance: EXEMESTANE
     Indication: NEOPLASM MALIGNANT
     Dosage: 25 MG, QD (USUALLY AT 10 PM OR BEFORE BEDTIME)
     Route: 048
     Dates: start: 201610
  3. AROMASIN [Suspect]
     Active Substance: EXEMESTANE
     Indication: BREAST CANCER
  4. ASPIRIN. [Concomitant]
     Active Substance: ASPIRIN
     Indication: HEADACHE
     Dosage: UNK UNK, BID
     Route: 065
     Dates: start: 20151005, end: 20170312
  5. ACETAMINOPHEN. [Concomitant]
     Active Substance: ACETAMINOPHEN
     Indication: HEADACHE
  6. ACETAMINOPHEN. [Concomitant]
     Active Substance: ACETAMINOPHEN
     Indication: PAIN
     Dosage: UNK UNK, BID
     Route: 065
     Dates: start: 20151005, end: 20170312
  7. IBUPROFEN. [Concomitant]
     Active Substance: IBUPROFEN
     Indication: PAIN
     Dosage: 200 MG, 2 TO MAX OF 3 TABLETS USUAL LATE DAY EVENING OR LATE NIGHT
     Route: 065
     Dates: start: 20151005, end: 20170312
  8. ATENOLOL. [Concomitant]
     Active Substance: ATENOLOL
     Indication: BLOOD PRESSURE MEASUREMENT
     Dosage: 50 MG, QD
     Route: 048
     Dates: start: 20151005
  9. METFORMIN [Concomitant]
     Active Substance: METFORMIN HYDROCHLORIDE
     Indication: DIABETES MELLITUS
     Dosage: 500 MG, BID
     Route: 048
     Dates: start: 20151005, end: 20170312
  10. METFORMIN [Concomitant]
     Active Substance: METFORMIN HYDROCHLORIDE
     Dosage: 500 MG, BID
     Route: 048
  11. CAFFEINE. [Concomitant]
     Active Substance: CAFFEINE
     Indication: PAIN
     Dosage: UNK UNK, BID
     Route: 065
     Dates: start: 20151005, end: 20170312
  12. CAFFEINE. [Concomitant]
     Active Substance: CAFFEINE
     Indication: HEADACHE
  13. VITAMIIN C [Concomitant]
     Active Substance: ASCORBIC ACID
     Indication: PRODUCT USED FOR UNKNOWN INDICATION
     Dosage: UNK
     Route: 065
  14. ASPIRIN. [Concomitant]
     Active Substance: ASPIRIN
     Indication: PAIN
  15. NAPROXEN. [Concomitant]
     Active Substance: NAPROXEN
     Indication: PRODUCT USED FOR UNKNOWN INDICATION
     Dosage: 500 MG, UNK
     Route: 065
     Dates: start: 20151005, end: 20170312

REACTIONS (9)
  - Nausea [Unknown]
  - Pneumonia [Unknown]
  - Hot flush [Not Recovered/Not Resolved]
  - Bone pain [Unknown]
  - Malaise [Not Recovered/Not Resolved]
  - Visual impairment [Not Recovered/Not Resolved]
  - Fatigue [Unknown]
  - Sepsis [Unknown]
  - Pneumothorax [Unknown]

NARRATIVE: CASE EVENT DATE: 2016
